FAERS Safety Report 24075762 (Version 1)
Quarter: 2024Q3

REPORT INFORMATION
  Report Type: Spontaneous
  Country: US (occurrence: US)
  Receive Date: 20240710
  Receipt Date: 20240710
  Transmission Date: 20241017
  Serious: Yes (Other)
  Sender: SUNOVION
  Company Number: US-SMPA-2024SPA000100

PATIENT

DRUGS (3)
  1. APTIOM [Suspect]
     Active Substance: ESLICARBAZEPINE ACETATE
     Dosage: 600 MG
     Route: 048
  2. APTIOM [Suspect]
     Active Substance: ESLICARBAZEPINE ACETATE
     Dosage: 800 MG
     Route: 048
  3. APTIOM [Suspect]
     Active Substance: ESLICARBAZEPINE ACETATE
     Dosage: 400 MG (CUTTING 800 MG PILLS IN HALF TO TAKE 400 MG)
     Route: 048

REACTIONS (6)
  - Hallucination [Unknown]
  - Dyspepsia [Unknown]
  - Abnormal dreams [Unknown]
  - Disorganised speech [Unknown]
  - Visual impairment [Unknown]
  - Balance disorder [Unknown]
